FAERS Safety Report 6207304-0 (Version None)
Quarter: 2009Q2

REPORT INFORMATION
  Report Type: 
  Country: None (occurrence: None)
  Receive Date: 20090527
  Receipt Date: 20090527
  Transmission Date: 20091009
  Serious: Yes (Disabling)
  Sender: FDA-Public Use
  Company Number: None

PATIENT
  Age: 76 Year
  Sex: Female
  Weight: 63.5036 kg

DRUGS (4)
  1. PRAVASTATIN [Suspect]
     Dosage: 80 MG/DAY, ORAL
     Route: 048
     Dates: start: 20090503, end: 20090510
  2. COLCHICINE [Concomitant]
  3. PANTOPRAZOLE SODIUM [Concomitant]
  4. PLAVIX [Concomitant]

REACTIONS (6)
  - BLOOD PRESSURE INCREASED [None]
  - ERYTHEMA [None]
  - MUSCULOSKELETAL PAIN [None]
  - NAUSEA [None]
  - OEDEMA PERIPHERAL [None]
  - PAIN IN EXTREMITY [None]
